FAERS Safety Report 4769028-6 (Version None)
Quarter: 2005Q3

REPORT INFORMATION
  Report Type: 
  Country: None (occurrence: None)
  Receive Date: 20050913
  Receipt Date: 20050902
  Transmission Date: 20060218
  Serious: Yes (Life-Threatening)
  Sender: FDA-Public Use
  Company Number: GBWYE948702SEP05

PATIENT
  Age: 18 Year

DRUGS (1)
  1. ALESSE [Suspect]
     Dosage: 0.1MG/0.02MG DAILY ORAL
     Route: 048
     Dates: end: 20050817

REACTIONS (2)
  - BUDD-CHIARI SYNDROME [None]
  - HEPATIC VEIN THROMBOSIS [None]
